FAERS Safety Report 12886734 (Version 3)
Quarter: 2016Q4

REPORT INFORMATION
  Report Type: Report from Study
  Country: None (occurrence: AR)
  Receive Date: 20161026
  Receipt Date: 20161229
  Transmission Date: 20170207
  Serious: Yes (Hospitalization, Other)
  Sender: FDA-Public Use
  Company Number: AR-ABBVIE-16K-007-1706435-00

PATIENT
  Age: 67 Year
  Sex: Female

DRUGS (2)
  1. CALCIUM [Concomitant]
     Active Substance: CALCIUM
     Indication: PRODUCT USED FOR UNKNOWN INDICATION
  2. HUMIRA [Suspect]
     Active Substance: ADALIMUMAB
     Indication: RHEUMATOID ARTHRITIS
     Route: 058
     Dates: start: 20090301, end: 201609

REACTIONS (4)
  - Wrist fracture [Unknown]
  - Road traffic accident [Recovered/Resolved with Sequelae]
  - Nosocomial infection [Recovered/Resolved]
  - Limb injury [Recovering/Resolving]

NARRATIVE: CASE EVENT DATE: 2016
